FAERS Safety Report 7586640-X (Version None)
Quarter: 2011Q3

REPORT INFORMATION
  Report Type: 
  Country: None (occurrence: None)
  Receive Date: 20110701
  Receipt Date: 20110613
  Transmission Date: 20111222
  Serious: No
  Sender: FDA-Public Use
  Company Number: US-B.I. PHARMACEUTICALS,INC./RIDGEFIELD-2011-BP-09042BP

PATIENT
  Sex: Female

DRUGS (10)
  1. ARIMIDEX [Concomitant]
     Indication: BREAST CANCER
     Dates: start: 20060101
  2. METOPROLOL TARTRATE [Concomitant]
     Indication: ATRIAL FIBRILLATION
     Dates: start: 20100101
  3. AVAPRO [Concomitant]
     Indication: HYPERTENSION
     Dates: start: 20070101
  4. TRILIPIX [Concomitant]
     Indication: BLOOD TRIGLYCERIDES INCREASED
     Dates: start: 20080101
  5. FUROSEMIDE [Concomitant]
     Indication: OEDEMA
     Dosage: 20 MG
     Route: 048
     Dates: start: 20110201
  6. SYNTHROID [Concomitant]
     Indication: HYPOTHYROIDISM
     Dosage: 0.125 MG
     Route: 048
     Dates: start: 19700101
  7. MULTAQ [Concomitant]
     Indication: ATRIAL FIBRILLATION
     Dates: start: 20100101
  8. PRADAXA [Suspect]
     Indication: ATRIAL FIBRILLATION
     Dosage: 300 MG
     Route: 048
     Dates: start: 20110201
  9. LIPITOR [Concomitant]
     Indication: BLOOD CHOLESTEROL INCREASED
     Dates: start: 20070101
  10. MELOXICAM [Concomitant]
     Indication: ARTHRITIS
     Dates: start: 20020101

REACTIONS (3)
  - WEIGHT INCREASED [None]
  - JOINT SWELLING [None]
  - DIARRHOEA [None]
